FAERS Safety Report 8792768 (Version 2)
Quarter: 2012Q4

REPORT INFORMATION
  Report Type: 
  Country: US (occurrence: US)
  Receive Date: 20120918
  Receipt Date: 20121025
  Transmission Date: 20130627
  Serious: No
  Sender: FDA-Public Use
  Company Number: US-B.I. PHARMACEUTICALS,INC./RIDGEFIELD-2012-BP-22183BP

PATIENT
  Age: 51 Year
  Sex: Female
  Weight: 63.96 kg

DRUGS (4)
  1. AGGRENOX [Suspect]
     Indication: TRANSIENT ISCHAEMIC ATTACK
     Route: 048
     Dates: start: 20120822, end: 20120823
  2. AGGRENOX [Suspect]
     Indication: CAROTID ARTERY STENOSIS
  3. BENICAR [Concomitant]
     Indication: HYPERTENSION
     Dates: start: 20120822
  4. ASA [Concomitant]
     Dates: start: 20120822

REACTIONS (5)
  - Chest pain [Recovered/Resolved]
  - Tachycardia [Recovered/Resolved]
  - Headache [Recovered/Resolved]
  - Abdominal pain [Unknown]
  - Dyspnoea [Unknown]
